FAERS Safety Report 8437193 (Version 3)
Quarter: 2012Q4

REPORT INFORMATION
  Report Type: Spontaneous
  Country: FR (occurrence: None)
  Receive Date: 20120217
  Receipt Date: 20121109
  Transmission Date: 20130627
  Serious: Yes (Hospitalization)
  Sender: FDA-Public Use
  Company Number: TPA2012A00802

PATIENT
  Age: 63 Year
  Sex: Male

DRUGS (4)
  1. FEBUXOSTAT [Suspect]
     Indication: HYPERURICAEMIA
     Dosage: 80 MG (80 MG, 1 IN 1 D)
     Route: 048
     Dates: start: 201106, end: 20111220
  2. FOSINOPRIL SODIUM [Concomitant]
  3. LASIX [Concomitant]
  4. INDAPAMIDE [Concomitant]

REACTIONS (3)
  - Microscopic polyangiitis [None]
  - Renal failure acute [None]
  - Nephrotic syndrome [None]
